FAERS Safety Report 5962456-2 (Version None)
Quarter: 2008Q4

REPORT INFORMATION
  Report Type: 
  Country: None (occurrence: None)
  Receive Date: 20081121
  Receipt Date: 20081114
  Transmission Date: 20090506
  Serious: Yes (Other)
  Sender: FDA-Public Use
  Company Number: NL-PFIZER INC-2008091998

PATIENT
  Sex: Male
  Weight: 95 kg

DRUGS (5)
  1. CHAMPIX [Suspect]
     Indication: SMOKING CESSATION THERAPY
     Route: 048
     Dates: start: 20081001, end: 20081001
  2. SYMBICORT [Concomitant]
  3. SPIRIVA [Concomitant]
  4. OMEPRAZOLE [Concomitant]
  5. LIPITOR [Concomitant]

REACTIONS (7)
  - DYSGEUSIA [None]
  - EYE PAIN [None]
  - MYALGIA [None]
  - NAUSEA [None]
  - PERIORBITAL OEDEMA [None]
  - PRURITUS [None]
  - RASH GENERALISED [None]
